FAERS Safety Report 12389136 (Version 2)
Quarter: 2016Q3

REPORT INFORMATION
  Report Type: Report from Study
  Country: BR (occurrence: BR)
  Receive Date: 20160520
  Receipt Date: 20160803
  Transmission Date: 20161109
  Serious: Yes (Other)
  Sender: FDA-Public Use
  Company Number: BR-ABBVIE-16P-020-1633465-00

PATIENT
  Sex: Female
  Weight: 64 kg

DRUGS (3)
  1. ALLEGRA-D [Concomitant]
     Active Substance: FEXOFENADINE\PSEUDOEPHEDRINE
     Indication: HYPERSENSITIVITY
     Dosage: POSOLOGY UNKNOWN (PATIENT IS NOT TAKING THE PRODUCT NOWADAYS)
  2. SYNTHROID [Suspect]
     Active Substance: LEVOTHYROXINE SODIUM
     Indication: THYROID DISORDER
     Route: 065
     Dates: start: 2011, end: 2014
  3. SYNTHROID [Suspect]
     Active Substance: LEVOTHYROXINE SODIUM
     Dosage: DAILY DOSE: 175 MCG (2 TABLETS OF 50MCG AND 1 TABLET OF 75MCG)
     Route: 065
     Dates: start: 2014

REACTIONS (2)
  - Blood thyroid stimulating hormone increased [Recovered/Resolved]
  - Papillary thyroid cancer [Unknown]

NARRATIVE: CASE EVENT DATE: 2014
